FAERS Safety Report 4837244-0 (Version None)
Quarter: 2005Q4

REPORT INFORMATION
  Report Type: 
  Country: None (occurrence: None)
  Receive Date: 20051122
  Receipt Date: 20051116
  Transmission Date: 20060501
  Serious: Yes (Other)
  Sender: FDA-Public Use
  Company Number: 200512644BWH

PATIENT
  Age: 37 Year
  Sex: Male

DRUGS (1)
  1. AVELOX [Suspect]
     Indication: TONSILLITIS

REACTIONS (1)
  - DIABETES MELLITUS [None]
